FAERS Safety Report 9160851 (Version 2)
Quarter: 2013Q1

REPORT INFORMATION
  Report Type: Report from Study
  Country: US (occurrence: US)
  Receive Date: 20130313
  Receipt Date: 20130325
  Transmission Date: 20140127
  Serious: Yes (Other)
  Sender: FDA-Public Use
  Company Number: US-US-EMD SERONO, INC.-7198267

PATIENT
  Sex: Female
  Weight: 108 kg

DRUGS (1)
  1. REBIF [Suspect]
     Indication: MULTIPLE SCLEROSIS
     Route: 058
     Dates: start: 20050518

REACTIONS (3)
  - Breast cancer [Recovering/Resolving]
  - Injection site bruising [Unknown]
  - Injection site reaction [Unknown]
